FAERS Safety Report 7681610-5 (Version None)
Quarter: 2011Q3

REPORT INFORMATION
  Report Type: 
  Country: None (occurrence: None)
  Receive Date: 20110812
  Receipt Date: 20110803
  Transmission Date: 20111222
  Serious: Yes (Other)
  Sender: FDA-Public Use
  Company Number: PHHY2011CA70409

PATIENT
  Sex: Female

DRUGS (1)
  1. GILENYA [Suspect]
     Dosage: 0.5 MG, DAILY
     Dates: start: 20110627

REACTIONS (4)
  - PAIN IN EXTREMITY [None]
  - FALL [None]
  - LACERATION [None]
  - HYPOAESTHESIA [None]
